FAERS Safety Report 15833485 (Version 1)
Quarter: 2019Q1

REPORT INFORMATION
  Report Type: Spontaneous
  Country: US (occurrence: US)
  Receive Date: 20190116
  Receipt Date: 20190116
  Transmission Date: 20190417
  Serious: Yes (Disabling)
  Sender: FDA-Public Use
  Company Number: None

PATIENT
  Age: 78 Year
  Sex: Female
  Weight: 61 kg

DRUGS (2)
  1. PEMBROLIZUMAB. [Suspect]
     Active Substance: PEMBROLIZUMAB
     Indication: BREAST CANCER FEMALE
     Dosage: ?          OTHER FREQUENCY:X2;?
     Route: 042
     Dates: start: 20180817, end: 20180912
  2. PEMBROLIZUMAB. [Suspect]
     Active Substance: PEMBROLIZUMAB
     Indication: METASTASES TO LUNG
     Dosage: ?          OTHER FREQUENCY:X2;?
     Route: 042
     Dates: start: 20180817, end: 20180912

REACTIONS (5)
  - Paraesthesia [None]
  - Muscular weakness [None]
  - Fall [None]
  - Gait inability [None]
  - Hypoaesthesia [None]

NARRATIVE: CASE EVENT DATE: 20180920
